FAERS Safety Report 11228320 (Version 1)
Quarter: 2015Q2

REPORT INFORMATION
  Report Type: Spontaneous
  Country: FR (occurrence: FR)
  Receive Date: 20150630
  Receipt Date: 20150630
  Transmission Date: 20150821
  Serious: Yes (Hospitalization, Other)
  Sender: FDA-Public Use
  Company Number: FR-ABBVIE-12P-056-0906949-00

PATIENT
  Age: 45 Year
  Sex: Male

DRUGS (1)
  1. HUMIRA [Suspect]
     Active Substance: ADALIMUMAB
     Indication: ANKYLOSING SPONDYLITIS
     Route: 058
     Dates: start: 201005, end: 20111107

REACTIONS (10)
  - Immune thrombocytopenic purpura [Unknown]
  - Autoantibody positive [Unknown]
  - Antiphospholipid antibodies positive [Unknown]
  - Deep vein thrombosis [Recovered/Resolved]
  - Antinuclear antibody positive [Unknown]
  - Asthenia [Unknown]
  - Antiphospholipid antibodies positive [Not Recovered/Not Resolved]
  - DNA antibody positive [Unknown]
  - Cardiolipin antibody positive [Unknown]
  - Bronchitis [Unknown]

NARRATIVE: CASE EVENT DATE: 201110
